FAERS Safety Report 5920986-3 (Version None)
Quarter: 2008Q4

REPORT INFORMATION
  Report Type: 
  Country: None (occurrence: None)
  Receive Date: 20081016
  Receipt Date: 20081008
  Transmission Date: 20090506
  Serious: Yes (Other)
  Sender: FDA-Public Use
  Company Number: JP-PFIZER INC-2008083662

PATIENT
  Age: 89 Year
  Sex: Female

DRUGS (6)
  1. NORVASC [Suspect]
     Dosage: DAILY DOSE:5MG
     Route: 048
     Dates: start: 20080930
  2. PURSENNID [Suspect]
     Route: 048
  3. MAGNESIUM OXIDE [Concomitant]
     Route: 048
  4. LOXOPROFEN SODIUM [Concomitant]
     Route: 048
  5. MUCOSTA [Concomitant]
     Route: 048
  6. LEVOTHYROXINE SODIUM [Concomitant]
     Route: 048

REACTIONS (1)
  - HAEMATURIA [None]
